FAERS Safety Report 5109593-2 (Version None)
Quarter: 2006Q3

REPORT INFORMATION
  Report Type: 
  Country: None (occurrence: None)
  Receive Date: 20060918
  Receipt Date: 20060830
  Transmission Date: 20061208
  Serious: Yes (Hospitalization)
  Sender: FDA-Public Use
  Company Number: FR200604004675

PATIENT
  Age: 76 Year
  Sex: Female

DRUGS (10)
  1. FORTEO [Suspect]
     Indication: OSTEOPOROSIS
     Dosage: 20 UG, DAILY (1/D), SUBCUTANEOUS
     Route: 058
     Dates: start: 20060130
  2. FORTEO [Concomitant]
  3. PREDNISONE TAB [Concomitant]
  4. METHOTREXATE [Concomitant]
  5. SPECIAFOLDINE (FOLIC ACID) [Concomitant]
  6. ATORVASTATIN CALCIUM [Concomitant]
  7. IRBESARTAN [Concomitant]
  8. LASIX [Concomitant]
  9. ASPIRIN [Concomitant]
  10. INEXIUM (ESOMEPRAZOLE) [Concomitant]

REACTIONS (5)
  - ANAEMIA [None]
  - GASTROINTESTINAL INFECTION [None]
  - PAIN [None]
  - PYREXIA [None]
  - RASH PUSTULAR [None]
